FAERS Safety Report 24911197 (Version 1)
Quarter: 2025Q1

REPORT INFORMATION
  Report Type: Spontaneous
  Country: US (occurrence: None)
  Receive Date: 20250131
  Receipt Date: 20250131
  Transmission Date: 20250409
  Serious: Yes (Hospitalization)
  Sender: FDA-CTU
  Company Number: None

PATIENT
  Age: 73 Year
  Sex: Female
  Weight: 69.75 kg

DRUGS (1)
  1. ATEZOLIZUMAB [Suspect]
     Active Substance: ATEZOLIZUMAB
     Dates: start: 20250107, end: 20250107

REACTIONS (5)
  - Sleep disorder [None]
  - Lethargy [None]
  - Decreased appetite [None]
  - Somnolence [None]
  - Hepatic cancer [None]

NARRATIVE: CASE EVENT DATE: 20250123
